FAERS Safety Report 25902922 (Version 1)
Quarter: 2025Q4

REPORT INFORMATION
  Report Type: Spontaneous
  Country: US (occurrence: None)
  Receive Date: 20251009
  Receipt Date: 20251009
  Transmission Date: 20260117
  Serious: Yes (Disabling)
  Sender: FDA-CTU
  Company Number: None

PATIENT
  Age: 46 Year
  Sex: Female
  Weight: 70.2 kg

DRUGS (2)
  1. CIPROFLOXACIN [Suspect]
     Active Substance: CIPROFLOXACIN
     Indication: Urinary tract infection
     Dates: start: 20250928, end: 20250928
  2. CEFPODOXIME [Suspect]
     Active Substance: CEFPODOXIME

REACTIONS (4)
  - Tendon pain [None]
  - Muscular weakness [None]
  - Gait inability [None]
  - Arthralgia [None]

NARRATIVE: CASE EVENT DATE: 20251006
